FAERS Safety Report 9541458 (Version 5)
Quarter: 2014Q2

REPORT INFORMATION
  Report Type: Report from Study
  Country: US (occurrence: US)
  Receive Date: 20130923
  Receipt Date: 20140516
  Transmission Date: 20141212
  Serious: Yes (Hospitalization, Other)
  Sender: FDA-Public Use
  Company Number: US-CELGENEUS-163-C5013-13081069

PATIENT
  Age: 74 Year
  Sex: Male
  Weight: 102.3 kg

DRUGS (24)
  1. BLINDED CC-5013 [Suspect]
     Indication: CHRONIC LYMPHOCYTIC LEUKAEMIA
     Dosage: 2.5 MILLIGRAM
     Route: 048
     Dates: start: 20110712
  2. BLINDED CC-5013 [Suspect]
     Dosage: 2.5 MILLIGRAM
     Route: 048
     Dates: start: 20130716, end: 20130806
  3. ZANAFLEX [Concomitant]
     Indication: PRODUCT USED FOR UNKNOWN INDICATION
     Dosage: 4 MILLIGRAM
     Route: 048
  4. MAGNESIUM OXIDE [Concomitant]
     Indication: PRODUCT USED FOR UNKNOWN INDICATION
     Dosage: 800 MILLIGRAM
     Route: 048
  5. HYDRALAZINE [Concomitant]
     Indication: PRODUCT USED FOR UNKNOWN INDICATION
     Dosage: 150 MILLIGRAM
     Route: 048
  6. K-DUR [Concomitant]
     Indication: PRODUCT USED FOR UNKNOWN INDICATION
     Dosage: 20 MILLIEQUIVALENTS
     Route: 048
  7. PIOGLITAZONE [Concomitant]
     Indication: PRODUCT USED FOR UNKNOWN INDICATION
     Dosage: 15 MILLIGRAM
     Route: 048
  8. ATENOLOL [Concomitant]
     Indication: HYPERTENSION
     Dosage: 100 MILLIGRAM
     Route: 048
     Dates: start: 200807
  9. LASIX [Concomitant]
     Indication: HYPERTENSION
     Dosage: 40 MILLIGRAM
     Route: 048
     Dates: start: 20111121
  10. LASIX [Concomitant]
     Indication: OEDEMA PERIPHERAL
  11. CHOLECALCIFEROL [Concomitant]
     Indication: PRODUCT USED FOR UNKNOWN INDICATION
     Dosage: 1000 UNITS
     Route: 048
  12. TAMSULOSIN [Concomitant]
     Indication: DYSURIA
     Dosage: .4 MILLIGRAM
     Route: 048
     Dates: start: 2010
  13. ASPIRIN [Concomitant]
     Indication: PRODUCT USED FOR UNKNOWN INDICATION
     Dosage: 81 MILLIGRAM
     Route: 048
  14. MOBIC [Concomitant]
     Indication: ARTHRALGIA
     Dosage: 7.5-15MG
     Route: 048
     Dates: start: 2010
  15. SAW PALMETTO [Concomitant]
     Indication: SUPPLEMENTATION THERAPY
     Dosage: 256 MILLIGRAM
     Route: 048
     Dates: start: 20090331
  16. CRESTOR [Concomitant]
     Indication: HYPERLIPIDAEMIA
     Dosage: 10 MILLIGRAM
     Route: 048
     Dates: start: 20080807
  17. CRESTOR [Concomitant]
     Indication: CORONARY ARTERY DISEASE
  18. ALBUTEROL [Concomitant]
     Indication: ASTHMA
     Route: 065
     Dates: start: 2008
  19. NEUPOGEN [Concomitant]
     Indication: NEUTROPENIA
     Route: 065
     Dates: start: 20110809
  20. METFORMIN [Concomitant]
     Indication: DIABETES MELLITUS
     Dosage: 500 MILLIGRAM
     Route: 065
     Dates: start: 20110922
  21. POLY IRON [Concomitant]
     Indication: SUPPLEMENTATION THERAPY
     Dosage: 150 MILLIGRAM
     Route: 065
     Dates: start: 201005
  22. XOPENEX [Concomitant]
     Indication: BRONCHITIS
     Route: 048
     Dates: start: 20120325
  23. POTASSIUM CHLORIDE [Concomitant]
     Indication: BLOOD POTASSIUM DECREASED
     Dosage: 60 MILLIGRAM
     Route: 048
     Dates: start: 20120319
  24. ERYTHROMYCIN [Concomitant]
     Indication: PNEUMONIA
     Dosage: 1000 MILLIGRAM
     Route: 048
     Dates: start: 20130311

REACTIONS (1)
  - Small intestine carcinoma [Not Recovered/Not Resolved]
